FAERS Safety Report 6593128-1 (Version None)
Quarter: 2010Q1

REPORT INFORMATION
  Report Type: 
  Country: None (occurrence: None)
  Receive Date: 20100222
  Receipt Date: 20100209
  Transmission Date: 20100710
  Serious: Yes (Hospitalization)
  Sender: FDA-Public Use
  Company Number: PHHY2010BE08284

PATIENT
  Age: 35 Year
  Sex: Male

DRUGS (3)
  1. CARBAMAZEPINE [Suspect]
     Dosage: SEVERAL TABLETS, UNK
     Route: 048
  2. DISULFIRAM [Suspect]
     Indication: AVERSION
     Dosage: 400 MG PER DAY
     Route: 048
     Dates: start: 20000101
  3. DISULFIRAM [Suspect]
     Dosage: 50 TABLETS, 20G, UNK
     Route: 048

REACTIONS (21)
  - AMMONIA INCREASED [None]
  - AREFLEXIA [None]
  - ATAXIA [None]
  - BODY TEMPERATURE DECREASED [None]
  - COMA [None]
  - CONVULSION [None]
  - COORDINATION ABNORMAL [None]
  - DEPRESSED LEVEL OF CONSCIOUSNESS [None]
  - DIPLOPIA [None]
  - DYSARTHRIA [None]
  - DYSPNOEA [None]
  - EPILEPSY [None]
  - HYPONATRAEMIA [None]
  - INTENTIONAL OVERDOSE [None]
  - METABOLIC ENCEPHALOPATHY [None]
  - MUSCULAR WEAKNESS [None]
  - MYOCLONUS [None]
  - QUADRIPARESIS [None]
  - SOMNOLENCE [None]
  - UNRESPONSIVE TO STIMULI [None]
  - VISION BLURRED [None]
